FAERS Safety Report 20681695 (Version 1)
Quarter: 2022Q2

REPORT INFORMATION
  Report Type: Spontaneous
  Country: US (occurrence: US)
  Receive Date: 20220406
  Receipt Date: 20220406
  Transmission Date: 20220721
  Serious: No
  Sender: FDA-Public Use
  Company Number: US-009507513-2203USA010413

PATIENT
  Age: 73 Year
  Sex: Male

DRUGS (13)
  1. JANUVIA [Suspect]
     Active Substance: SITAGLIPTIN PHOSPHATE
     Indication: Type 2 diabetes mellitus
     Dosage: 100 MG/ ONCE DAILY
     Route: 048
     Dates: start: 202201
  2. TRULICITY [Suspect]
     Active Substance: DULAGLUTIDE
     Dosage: UNK
  3. METFORMIN [Concomitant]
     Active Substance: METFORMIN HYDROCHLORIDE
  4. PRANDIN [Concomitant]
     Active Substance: REPAGLINIDE
  5. OMEPRAZOLE [Concomitant]
     Active Substance: OMEPRAZOLE
  6. BUPROPION [Concomitant]
     Active Substance: BUPROPION
  7. ATORVASTATIN [Concomitant]
     Active Substance: ATORVASTATIN
  8. CARVEDILOL [Concomitant]
     Active Substance: CARVEDILOL
  9. TRIBENZOR [Concomitant]
     Active Substance: AMLODIPINE BESYLATE\HYDROCHLOROTHIAZIDE\OLMESARTAN MEDOXOMIL
  10. REPAGLINIDE [Concomitant]
     Active Substance: REPAGLINIDE
  11. FLUTICASONE [Concomitant]
     Active Substance: FLUTICASONE
  12. ELIQUIS [Concomitant]
     Active Substance: APIXABAN
  13. NIACIN [Concomitant]
     Active Substance: NIACIN

REACTIONS (2)
  - Insomnia [Not Recovered/Not Resolved]
  - Decreased appetite [Not Recovered/Not Resolved]

NARRATIVE: CASE EVENT DATE: 20220322
